FAERS Safety Report 8581647-8 (Version None)
Quarter: 2012Q3

REPORT INFORMATION
  Report Type: 
  Country: None (occurrence: None)
  Receive Date: 20120809
  Receipt Date: 20120731
  Transmission Date: 20120928
  Serious: Yes (Hospitalization, Other)
  Sender: FDA-Public Use
  Company Number: FR-ASTRAZENECA-2012SE55115

PATIENT
  Age: 25587 Day
  Sex: Female

DRUGS (15)
  1. OMEPRAZOLE [Concomitant]
  2. CORDARONE [Concomitant]
  3. PREVISCAN [Suspect]
     Route: 048
     Dates: start: 20120213, end: 20120301
  4. LEVOTHYROXINE SODIUM [Concomitant]
  5. NOVORAPID [Concomitant]
  6. NEXIUM [Suspect]
     Route: 048
     Dates: start: 20120217, end: 20120301
  7. CIPROFLOXACIN HYDROCHLORIDE [Suspect]
     Route: 048
     Dates: start: 20120220, end: 20120301
  8. LASIX [Concomitant]
     Dates: start: 20120213
  9. GLUCOPHAGE [Concomitant]
  10. ASPIRIN [Concomitant]
  11. LEXOMIL [Concomitant]
  12. IMOVANE [Concomitant]
  13. PULMICORT [Concomitant]
     Route: 055
  14. POTASSIUM CHLORIDE [Concomitant]
  15. LANTUS [Concomitant]

REACTIONS (4)
  - HYPERTHERMIA [None]
  - NEUTROPENIA [None]
  - CULTURE URINE POSITIVE [None]
  - NAUSEA [None]
